FAERS Safety Report 18595913 (Version 1)
Quarter: 2020Q4

REPORT INFORMATION
  Report Type: Spontaneous
  Country: US (occurrence: US)
  Receive Date: 20201209
  Receipt Date: 20201209
  Transmission Date: 20210114
  Serious: No
  Sender: FDA-Public Use
  Company Number: US-SUPERNUS PHARMACEUTICALS, INC.-2020SUP00151

PATIENT
  Sex: Female

DRUGS (1)
  1. TROKENDI XR [Suspect]
     Active Substance: TOPIRAMATE
     Indication: HEADACHE
     Dosage: UNK

REACTIONS (2)
  - Taste disorder [Not Recovered/Not Resolved]
  - Product use in unapproved indication [Not Recovered/Not Resolved]
